FAERS Safety Report 11999958 (Version 2)
Quarter: 2016Q3

REPORT INFORMATION
  Report Type: Report from Study
  Country: BR (occurrence: BR)
  Receive Date: 20160204
  Receipt Date: 20160714
  Transmission Date: 20161109
  Serious: Yes (Hospitalization, Other)
  Sender: FDA-Public Use
  Company Number: PHHY2016BR013885

PATIENT
  Age: 68 Year
  Sex: Female
  Weight: 49 kg

DRUGS (4)
  1. AFINITOR [Suspect]
     Active Substance: EVEROLIMUS
     Indication: RENAL CANCER METASTATIC
     Dosage: 1 DF (OF 10 MG), QD
     Route: 048
     Dates: start: 201509
  2. MORPHINE [Concomitant]
     Active Substance: MORPHINE
     Indication: PAIN
     Route: 065
  3. DIOSMIN W/HESPERIDIN [Concomitant]
     Indication: PERIPHERAL VASCULAR DISORDER
     Route: 065
  4. AFINITOR [Suspect]
     Active Substance: EVEROLIMUS
     Dosage: 2 DF (OF 5 MG), QD
     Route: 048

REACTIONS (11)
  - Asthenia [Recovering/Resolving]
  - Epistaxis [Recovered/Resolved]
  - Epistaxis [Unknown]
  - Vomiting [Unknown]
  - Constipation [Recovering/Resolving]
  - Weight decreased [Unknown]
  - Nervousness [Unknown]
  - Malaise [Recovering/Resolving]
  - Onychoclasis [Unknown]
  - Hypophagia [Recovered/Resolved]
  - Metastasis [Unknown]

NARRATIVE: CASE EVENT DATE: 201511
